FAERS Safety Report 24228144 (Version 1)
Quarter: 2024Q3

REPORT INFORMATION
  Report Type: Report from Study
  Country: US (occurrence: US)
  Receive Date: 20240820
  Receipt Date: 20240820
  Transmission Date: 20241016
  Serious: Yes (Other)
  Sender: RANBAXY
  Company Number: US-SUNPHARMA-2024R1-433240AA

PATIENT
  Age: 27 Year
  Sex: Female
  Weight: 104.76 kg

DRUGS (4)
  1. TILDRAKIZUMAB [Suspect]
     Active Substance: TILDRAKIZUMAB
     Indication: Product used for unknown indication
     Dosage: 100 MILLIGRAM, Q12 WEEKS
     Route: 065
     Dates: start: 20230707
  2. DULOXETINE [Concomitant]
     Active Substance: DULOXETINE
     Indication: Product used for unknown indication
     Dosage: UNK
     Route: 065
  3. METHOTREXATE [Concomitant]
     Active Substance: METHOTREXATE
     Indication: Product used for unknown indication
     Dosage: UNK
     Route: 065
  4. KETOCONAZOLE [Concomitant]
     Active Substance: KETOCONAZOLE
     Indication: Product used for unknown indication
     Dosage: UNK
     Route: 065

REACTIONS (4)
  - Pharyngitis [Unknown]
  - Cellulitis [Unknown]
  - Conjunctivitis [Unknown]
  - Genital candidiasis [Unknown]

NARRATIVE: CASE EVENT DATE: 20231201
